FAERS Safety Report 4395264-7 (Version None)
Quarter: 2004Q3

REPORT INFORMATION
  Report Type: 
  Country: None (occurrence: None)
  Receive Date: 20040712
  Receipt Date: 20040707
  Transmission Date: 20050211
  Serious: Yes (Other)
  Sender: FDA-Public Use
  Company Number: US-MERCK-0407USA00571

PATIENT
  Age: 79 Year
  Sex: Male
  Weight: 80 kg

DRUGS (9)
  1. AMIODARONE [Concomitant]
     Route: 065
  2. AMIODARONE [Concomitant]
     Route: 065
  3. TOPROL-XL [Concomitant]
     Route: 065
  4. VIOXX [Suspect]
     Indication: ARTHRALGIA
     Route: 048
     Dates: start: 20040101, end: 20040501
  5. VIOXX [Suspect]
     Route: 048
     Dates: start: 20040101, end: 20040501
  6. VIOXX [Suspect]
     Indication: POST PROCEDURAL PAIN
     Route: 048
     Dates: start: 20040101, end: 20040501
  7. VIOXX [Suspect]
     Route: 048
     Dates: start: 20040101, end: 20040501
  8. AZMACORT [Concomitant]
     Route: 055
  9. DIOVAN [Concomitant]
     Route: 065

REACTIONS (6)
  - ARTHRALGIA [None]
  - CARDIAC FAILURE CONGESTIVE [None]
  - CARDIOMEGALY [None]
  - PITTING OEDEMA [None]
  - PLEURAL EFFUSION [None]
  - SLEEP DISORDER DUE TO GENERAL MEDICAL CONDITION, INSOMNIA TYPE [None]
